FAERS Safety Report 25729689 (Version 1)
Quarter: 2025Q3

REPORT INFORMATION
  Report Type: Spontaneous
  Country: EU (occurrence: EU)
  Receive Date: 20250827
  Receipt Date: 20250827
  Transmission Date: 20251021
  Serious: Yes (Other)
  Sender: TAKEDA
  Company Number: EU-TAKEDA-2025TUS075030

PATIENT
  Age: 53 Year
  Sex: Male
  Weight: 97 kg

DRUGS (6)
  1. FEBUXOSTAT [Suspect]
     Active Substance: FEBUXOSTAT
     Indication: Product used for unknown indication
  2. RISEDRONATE SODIUM [Suspect]
     Active Substance: RISEDRONATE SODIUM
     Indication: Malaise
  3. RISEDRONATE SODIUM [Suspect]
     Active Substance: RISEDRONATE SODIUM
     Indication: Osteoarthritis
  4. RISEDRONATE SODIUM [Suspect]
     Active Substance: RISEDRONATE SODIUM
     Indication: Bone marrow disorder
  5. TASIGNA [Suspect]
     Active Substance: NILOTINIB
     Indication: Chronic myeloid leukaemia
     Dosage: 300 MILLIGRAM, BID
     Dates: start: 20191204, end: 20201029
  6. TASIGNA [Suspect]
     Active Substance: NILOTINIB
     Dosage: 600 MILLIGRAM, BID
     Dates: start: 20201125, end: 20201217

REACTIONS (23)
  - Monocyte count increased [Recovered/Resolved]
  - Band neutrophil count decreased [Unknown]
  - Lymphocyte count increased [Unknown]
  - Bronchitis chronic [Unknown]
  - Patellofemoral pain syndrome [Not Recovered/Not Resolved]
  - Headache [Unknown]
  - Back pain [Not Recovered/Not Resolved]
  - Cytogenetic analysis abnormal [Recovered/Resolved]
  - Nutritional condition abnormal [Unknown]
  - Obesity [Unknown]
  - Haemoglobin decreased [Unknown]
  - Haematocrit decreased [Unknown]
  - Blood pressure increased [Unknown]
  - Pain [Unknown]
  - Nocturia [Unknown]
  - Lymphocyte count decreased [Recovered/Resolved]
  - Eosinophil count increased [Recovered/Resolved]
  - Dry skin [Unknown]
  - Gamma-glutamyltransferase increased [Unknown]
  - Monocyte count decreased [Unknown]
  - Blood albumin increased [Unknown]
  - Stress [Unknown]
  - Gout [Unknown]

NARRATIVE: CASE EVENT DATE: 20191211
